APPROVED DRUG PRODUCT: ATORVASTATIN CALCIUM
Active Ingredient: ATORVASTATIN CALCIUM
Strength: EQ 80MG BASE
Dosage Form/Route: TABLET;ORAL
Application: A216848 | Product #004
Applicant: LEPU PHARMACEUTICAL TECHNOLOGY CO LTD
Approved: Nov 3, 2022 | RLD: No | RS: No | Type: DISCN